FAERS Safety Report 6773418-X (Version None)
Quarter: 2010Q2

REPORT INFORMATION
  Report Type: 
  Country: None (occurrence: None)
  Receive Date: 20100616
  Receipt Date: 20100510
  Transmission Date: 20101027
  Serious: No
  Sender: FDA-Public Use
  Company Number: US-ABBOTT-10P-163-0643892-00

PATIENT
  Sex: Male
  Weight: 120.31 kg

DRUGS (13)
  1. TRILIPIX [Suspect]
     Indication: HIGH DENSITY LIPOPROTEIN DECREASED
     Route: 048
     Dates: start: 20090101
  2. HCTZ WITH POTASSIUM [Concomitant]
     Indication: HYPERTENSION
  3. LYRICA [Concomitant]
     Indication: HEADACHE
     Route: 048
  4. LYRICA [Concomitant]
     Indication: CONVULSION
  5. PROTONIX [Concomitant]
     Indication: GASTROOESOPHAGEAL REFLUX DISEASE
  6. ATIVAN [Concomitant]
     Indication: DRUG USE FOR UNKNOWN INDICATION
     Route: 048
  7. VALTREX [Concomitant]
     Indication: HERPES ZOSTER
  8. VALTREX [Concomitant]
     Indication: PROPHYLAXIS
  9. CLARINEX [Concomitant]
     Indication: SEASONAL ALLERGY
  10. ZOLOFT [Concomitant]
     Indication: BRAIN INJURY
     Dosage: 12.5MG EVERY MORNING AND 25MG AT BEDTIME
  11. FLONASE [Concomitant]
     Indication: SEASONAL ALLERGY
  12. ZONISAMIDE [Concomitant]
     Indication: HEADACHE
  13. VITAMIN B-12 [Concomitant]
     Indication: DRUG USE FOR UNKNOWN INDICATION

REACTIONS (3)
  - BACK PAIN [None]
  - BLOOD CREATININE INCREASED [None]
  - TONSILLITIS [None]
